FAERS Safety Report 7435217-5 (Version None)
Quarter: 2011Q2

REPORT INFORMATION
  Report Type: 
  Country: None (occurrence: None)
  Receive Date: 20110425
  Receipt Date: 20110407
  Transmission Date: 20111010
  Serious: No
  Sender: FDA-Public Use
  Company Number: US-B.I. PHARMACEUTICALS,INC./RIDGEFIELD-2011-BP-02204BP

PATIENT
  Sex: Male

DRUGS (9)
  1. ZOCOR [Concomitant]
     Indication: CARDIAC DISORDER
  2. PRADAXA [Suspect]
     Indication: ANTICOAGULANT THERAPY
     Dosage: 300 MG
     Route: 048
     Dates: start: 20110101
  3. NORVASC [Concomitant]
     Indication: HYPERTENSION
     Dosage: 10 MG
     Route: 048
     Dates: start: 20030101
  4. CLARITIN [Concomitant]
     Indication: HYPERSENSITIVITY
     Dosage: 10 MG
     Route: 048
  5. VENTOLIN [Concomitant]
     Route: 055
  6. PRADAXA [Suspect]
     Indication: CARDIOVASCULAR EVENT PROPHYLAXIS
  7. LISINOPRIL [Concomitant]
     Indication: HYPERTENSION
     Dosage: 20 MG
     Route: 048
     Dates: start: 20080801
  8. ZOCOR [Concomitant]
     Indication: BLOOD CHOLESTEROL INCREASED
     Dosage: 20 MG
     Route: 048
     Dates: start: 20080101
  9. ADVAIR DISC [Concomitant]
     Indication: ASTHMA
     Route: 055
     Dates: start: 20070101

REACTIONS (3)
  - DIZZINESS [None]
  - VISUAL FIELD DEFECT [None]
  - TREMOR [None]
